FAERS Safety Report 9817208 (Version 1)
Quarter: 2014Q1

REPORT INFORMATION
  Report Type: Spontaneous
  Country: US (occurrence: US)
  Receive Date: 20140114
  Receipt Date: 20140114
  Transmission Date: 20141002
  Serious: Yes (Disabling, Other)
  Sender: FDA-Public Use
  Company Number: US-JNJFOC-20140100362

PATIENT
  Age: 66 Year
  Sex: Female
  Weight: 81.65 kg

DRUGS (1)
  1. BENADRYL UNSPECIFIED [Suspect]
     Indication: MULTIPLE ALLERGIES
     Route: 048
     Dates: start: 20131101

REACTIONS (4)
  - Blindness [Not Recovered/Not Resolved]
  - Lens disorder [Not Recovered/Not Resolved]
  - Corneal disorder [Not Recovered/Not Resolved]
  - Foreign body sensation in eyes [Not Recovered/Not Resolved]
